FAERS Safety Report 7642915-7 (Version None)
Quarter: 2011Q3

REPORT INFORMATION
  Report Type: 
  Country: None (occurrence: None)
  Receive Date: 20110728
  Receipt Date: 20110714
  Transmission Date: 20111222
  Serious: Yes (Other)
  Sender: FDA-Public Use
  Company Number: US-BAYER-2011-062638

PATIENT
  Age: 88 Year
  Sex: Male
  Weight: 54 kg

DRUGS (4)
  1. ALENDRONATE SODIUM [Concomitant]
  2. MAGNESIUM HYDROXIDE TAB [Suspect]
     Indication: CONSTIPATION
     Dosage: UNK UNK, QOD
     Route: 048
  3. CHOLESTEROL [Concomitant]
  4. ASPIRIN [Suspect]
     Dosage: UNK
     Route: 048

REACTIONS (2)
  - FAECES DISCOLOURED [None]
  - DIARRHOEA [None]
